FAERS Safety Report 5610573-9 (Version None)
Quarter: 2008Q1

REPORT INFORMATION
  Report Type: 
  Country: None (occurrence: None)
  Receive Date: 20080131
  Receipt Date: 20080131
  Transmission Date: 20080703
  Serious: Yes (Other)
  Sender: FDA-Public Use
  Company Number: None

PATIENT
  Sex: Female
  Weight: 81.6475 kg

DRUGS (1)
  1. BONIVA [Suspect]
     Indication: BONE DISORDER
     Dosage: 1  MONTHLY  PO
     Route: 048
     Dates: start: 19860401, end: 20071201

REACTIONS (3)
  - ARTHRALGIA [None]
  - BONE DISORDER [None]
  - HAND FRACTURE [None]
